FAERS Safety Report 17900774 (Version 1)
Quarter: 2020Q2

REPORT INFORMATION
  Report Type: Spontaneous
  Country: US (occurrence: US)
  Receive Date: 20200616
  Receipt Date: 20200616
  Transmission Date: 20200714
  Serious: Yes (Life-Threatening, Hospitalization)
  Sender: FDA-Public Use
  Company Number: None

PATIENT
  Age: 24 Year
  Sex: Female
  Weight: 68.04 kg

DRUGS (2)
  1. PARAGARD T 380A [Suspect]
     Active Substance: COPPER
     Dates: start: 20181206
  2. LEXAPRO [Concomitant]
     Active Substance: ESCITALOPRAM OXALATE

REACTIONS (8)
  - Internal haemorrhage [None]
  - Abortion induced [None]
  - Ectopic pregnancy [None]
  - Pregnancy with contraceptive device [None]
  - Induced abortion failed [None]
  - Fallopian tube perforation [None]
  - Ectopic pregnancy termination [None]
  - Device dislocation [None]

NARRATIVE: CASE EVENT DATE: 20200605
